FAERS Safety Report 7564798-6 (Version None)
Quarter: 2011Q2

REPORT INFORMATION
  Report Type: 
  Country: None (occurrence: None)
  Receive Date: 20110622
  Receipt Date: 20101130
  Transmission Date: 20111010
  Serious: Yes (Death)
  Sender: FDA-Public Use
  Company Number: US-MYLANLABS-2010S1021957

PATIENT
  Age: 31 Year
  Sex: Female

DRUGS (20)
  1. METFORMIN HCL [Concomitant]
  2. DIPHENOXYLATE HCL + ATROPINE SULFATE [Concomitant]
  3. BENZTROPINE MESYLATE [Concomitant]
  4. NEXIUM [Concomitant]
  5. VITAMIN D [Concomitant]
  6. GABAPENTIN [Concomitant]
  7. FEXOFENADINE [Concomitant]
  8. FLUDROCORTISONE ACETATE [Concomitant]
  9. ROPINIROLE [Concomitant]
  10. METOCLOPRAMIDE [Concomitant]
  11. PRAZOSIN HCL [Concomitant]
  12. LEVOTHYROXINE SODIUM [Concomitant]
  13. FERRO SULPHATE [Concomitant]
  14. CLOZAPINE [Suspect]
     Indication: SCHIZOAFFECTIVE DISORDER
     Route: 048
     Dates: start: 20090608
  15. HYDROCHLOROTHIAZIDE [Concomitant]
  16. ZESTRIL [Concomitant]
  17. OXCARBAZEPINE [Concomitant]
  18. AMBIEN [Concomitant]
  19. TOPIRAMATE [Concomitant]
  20. CYMBALTA [Concomitant]

REACTIONS (2)
  - DYSPNOEA [None]
  - DEATH [None]
